FAERS Safety Report 10164473 (Version 1)
Quarter: 2014Q2

REPORT INFORMATION
  Report Type: Spontaneous
  Country: US (occurrence: US)
  Receive Date: 20140510
  Receipt Date: 20140510
  Transmission Date: 20141212
  Serious: No
  Sender: FDA-Public Use
  Company Number: US-BRISTOL-MYERS SQUIBB COMPANY-19529528

PATIENT
  Age: 47 Year
  Sex: Female
  Weight: 121.54 kg

DRUGS (3)
  1. BYDUREON [Suspect]
     Indication: TYPE 2 DIABETES MELLITUS
     Dosage: 4 INJECTIONS
  2. METFORMIN [Concomitant]
     Dosage: 750MG- ONE THREE TIMES A DAY
  3. LISINOPRIL [Concomitant]

REACTIONS (2)
  - Rash pruritic [Recovering/Resolving]
  - Injection site nodule [Unknown]
